FAERS Safety Report 13122771 (Version 2)
Quarter: 2017Q1

REPORT INFORMATION
  Report Type: Spontaneous
  Country: IT (occurrence: IT)
  Receive Date: 20170117
  Receipt Date: 20170209
  Transmission Date: 20170428
  Serious: Yes (Other)
  Sender: FDA-Public Use
  Company Number: IT-MYLANLABS-2017M1002538

PATIENT

DRUGS (3)
  1. VALACICLOVIR [Suspect]
     Active Substance: VALACYCLOVIR HYDROCHLORIDE
     Indication: HERPES ZOSTER
     Dosage: 3000 MG, QD
     Dates: start: 20161204, end: 20161216
  2. PARACETAMOL [Suspect]
     Active Substance: ACETAMINOPHEN
     Indication: HERPES ZOSTER
     Dosage: 1500 MG, QD
     Dates: start: 20161204, end: 20161215
  3. KEYTRUDA [Suspect]
     Active Substance: PEMBROLIZUMAB
     Indication: MALIGNANT MELANOMA
     Dosage: 112 MG, CYCLE
     Route: 042
     Dates: start: 20161125

REACTIONS (1)
  - Liver function test abnormal [Recovered/Resolved]

NARRATIVE: CASE EVENT DATE: 20161223
